FAERS Safety Report 4454548-4 (Version None)
Quarter: 2004Q3

REPORT INFORMATION
  Report Type: 
  Country: None (occurrence: None)
  Receive Date: 20040823
  Receipt Date: 20040730
  Transmission Date: 20050211
  Serious: Yes (Hospitalization)
  Sender: FDA-Public Use
  Company Number: CIP04001155

PATIENT
  Sex: Female

DRUGS (1)
  1. ASACOL [Suspect]
     Dosage: ORAL
     Route: 048

REACTIONS (2)
  - ANTINUCLEAR ANTIBODY POSITIVE [None]
  - PERICARDITIS [None]
